FAERS Safety Report 10426115 (Version 1)
Quarter: 2014Q3

REPORT INFORMATION
  Report Type: Spontaneous
  Country: US (occurrence: US)
  Receive Date: 20140903
  Receipt Date: 20140903
  Transmission Date: 20150326
  Serious: Yes (Hospitalization, Other)
  Sender: FDA-Public Use
  Company Number: US-AMGEN-USASP2014066476

PATIENT
  Age: 73 Year
  Sex: Female

DRUGS (1)
  1. ENBREL [Suspect]
     Active Substance: ETANERCEPT
     Indication: RHEUMATOID ARTHRITIS
     Dosage: 50 MG, QWK
     Route: 065
     Dates: start: 20140516, end: 201407

REACTIONS (5)
  - Hypotension [Recovered/Resolved]
  - Pulmonary thrombosis [Recovered/Resolved]
  - Gastrointestinal fungal infection [Recovered/Resolved]
  - Thrombosis [Recovered/Resolved]
  - Dyspnoea [Not Recovered/Not Resolved]
